FAERS Safety Report 5639266-9 (Version None)
Quarter: 2008Q1

REPORT INFORMATION
  Report Type: 
  Country: None (occurrence: None)
  Receive Date: 20080226
  Receipt Date: 20080123
  Transmission Date: 20080703
  Serious: No
  Sender: FDA-Public Use
  Company Number: US-BOEHRINGER INGELHEIM GMBH, GERMANY-2007-BP-26430BP

PATIENT
  Sex: Male

DRUGS (8)
  1. FLOMAX [Suspect]
     Indication: BENIGN PROSTATIC HYPERPLASIA
     Route: 048
     Dates: start: 20030101
  2. ENALAPRIL MALEATE [Concomitant]
  3. HYDROCHLOROTHIAZIDE [Concomitant]
  4. LOVASTATIN [Concomitant]
  5. ECOTRIN [Concomitant]
     Dosage: ONE BABY
  6. PROSCAR [Concomitant]
  7. AMLODIPINE [Concomitant]
  8. TEMAZEPAM [Concomitant]

REACTIONS (3)
  - DIZZINESS [None]
  - EAR CONGESTION [None]
  - RHINORRHOEA [None]
